FAERS Safety Report 14540656 (Version 1)
Quarter: 2018Q1

REPORT INFORMATION
  Report Type: Report from Study
  Country: US (occurrence: US)
  Receive Date: 20180216
  Receipt Date: 20180216
  Transmission Date: 20180509
  Serious: Yes (Hospitalization, Other)
  Sender: FDA-Public Use
  Company Number: US-GILEAD-2017-0291836

PATIENT
  Age: 67 Year
  Sex: Male

DRUGS (1)
  1. RANOLAZINE. [Suspect]
     Active Substance: RANOLAZINE
     Indication: ANGINA PECTORIS
     Dosage: 1000 MG, UNK
     Route: 048
     Dates: start: 2017

REACTIONS (6)
  - Arterial occlusive disease [Unknown]
  - Stent placement [Unknown]
  - Haemorrhage [Unknown]
  - Device dislocation [Unknown]
  - Catheter placement [Unknown]
  - Product use issue [Unknown]

NARRATIVE: CASE EVENT DATE: 201708
